FAERS Safety Report 5486992-0 (Version None)
Quarter: 2007Q4

REPORT INFORMATION
  Report Type: 
  Country: None (occurrence: None)
  Receive Date: 20071016
  Receipt Date: 20071001
  Transmission Date: 20080405
  Serious: Yes (Disabling)
  Sender: FDA-Public Use
  Company Number: JP-ELI_LILLY_AND_COMPANY-JP200710002430

PATIENT
  Sex: Female
  Weight: 52 kg

DRUGS (5)
  1. GEMCITABINE HCL [Suspect]
     Indication: BILE DUCT CANCER
     Dosage: 1200 MG, OTHER
     Route: 042
     Dates: start: 20070619, end: 20070904
  2. GEMCITABINE HCL [Suspect]
     Dosage: 1000 MG, OTHER
     Route: 042
     Dates: start: 20070807, end: 20070904
  3. TS 1 /JPN/ [Concomitant]
     Indication: BILE DUCT CANCER
     Dosage: 20 MG, 2/D
     Route: 048
     Dates: start: 20070807, end: 20070910
  4. KYTRIL [Concomitant]
     Indication: PROPHYLAXIS
     Dosage: 3 MG, DAILY (1/D)
     Route: 042
     Dates: start: 20070619, end: 20070904
  5. DECADRON [Concomitant]
     Indication: PROPHYLAXIS
     Dosage: 2 MG, DAILY (1/D)
     Route: 042
     Dates: start: 20070619, end: 20070904

REACTIONS (1)
  - HYPOAESTHESIA [None]
